FAERS Safety Report 17212578 (Version 1)
Quarter: 2019Q4

REPORT INFORMATION
  Report Type: Spontaneous
  Country: CA (occurrence: CA)
  Receive Date: 20191230
  Receipt Date: 20191230
  Transmission Date: 20200122
  Serious: Yes (Other)
  Sender: FDA-Public Use
  Company Number: CA-TEVA-2019-CA-1158255

PATIENT
  Age: 50 Year
  Sex: Female

DRUGS (14)
  1. MAGNESIUM [Concomitant]
     Active Substance: MAGNESIUM
     Route: 048
  2. ESOMEPRAZOLE MAGNESIUM TRIHYDRATE [Suspect]
     Active Substance: ESOMEPRAZOLE MAGNESIUM
     Indication: PRODUCT USED FOR UNKNOWN INDICATION
     Route: 048
  3. CALCIUM [Concomitant]
     Active Substance: CALCIUM
     Route: 048
  4. VENTOLIN [Concomitant]
     Active Substance: ALBUTEROL SULFATE
  5. VITAMIN D [Concomitant]
     Active Substance: VITAMIN D NOS
     Route: 048
  6. ESTRADOT [Concomitant]
     Active Substance: ESTRADIOL
  7. PENTASA [Concomitant]
     Active Substance: MESALAMINE
  8. PROGESTONE [Concomitant]
  9. SYMBICORT [Concomitant]
     Active Substance: BUDESONIDE\FORMOTEROL FUMARATE DIHYDRATE
  10. AZATHIOPRINE. [Concomitant]
     Active Substance: AZATHIOPRINE
  11. ZOPICLONE [Concomitant]
     Active Substance: ZOPICLONE
  12. VITAMIN B12 [Concomitant]
     Active Substance: CYANOCOBALAMIN
     Route: 048
  13. PRISTIQ EXTENDED-RELEASE [Concomitant]
     Active Substance: DESVENLAFAXINE SUCCINATE
  14. ENTOCORT [Concomitant]
     Active Substance: BUDESONIDE

REACTIONS (8)
  - Abdominal pain [Unknown]
  - Crohn^s disease [Unknown]
  - Depression [Unknown]
  - Asthma [Unknown]
  - Decreased appetite [Unknown]
  - Hyperparathyroidism [Unknown]
  - Bowel movement irregularity [Unknown]
  - Gastrooesophageal reflux disease [Unknown]
